FAERS Safety Report 16043454 (Version 2)
Quarter: 2019Q1

REPORT INFORMATION
  Report Type: Spontaneous
  Country: US (occurrence: US)
  Receive Date: 20190306
  Receipt Date: 20190309
  Transmission Date: 20190418
  Serious: No
  Sender: FDA-Public Use
  Company Number: US-JNJFOC-20190215531

PATIENT
  Sex: Female

DRUGS (2)
  1. ROGAINE [Suspect]
     Active Substance: MINOXIDIL
     Route: 061
  2. ROGAINE [Suspect]
     Active Substance: MINOXIDIL
     Indication: TRICHORRHEXIS
     Route: 061

REACTIONS (1)
  - Product use in unapproved indication [Unknown]
